FAERS Safety Report 7573424-1 (Version None)
Quarter: 2011Q2

REPORT INFORMATION
  Report Type: 
  Country: None (occurrence: None)
  Receive Date: 20110627
  Receipt Date: 20110520
  Transmission Date: 20111010
  Serious: No
  Sender: FDA-Public Use
  Company Number: A0929438A

PATIENT
  Age: 40 Year
  Sex: Female

DRUGS (1)
  1. LAMICTAL XR [Suspect]
     Dosage: 100MG UNKNOWN
     Route: 065
     Dates: start: 20110429, end: 20110520

REACTIONS (2)
  - DRUG INTOLERANCE [None]
  - ADVERSE DRUG REACTION [None]
